FAERS Safety Report 15230131 (Version 1)
Quarter: 2018Q3

REPORT INFORMATION
  Report Type: Report from Study
  Country: BR (occurrence: BR)
  Receive Date: 20180802
  Receipt Date: 20180802
  Transmission Date: 20181010
  Serious: Yes (Other)
  Sender: FDA-Public Use
  Company Number: BR-B.I. PHARMACEUTICALS,INC./RIDGEFIELD-2018-BI-038695

PATIENT
  Age: 62 Year
  Sex: Male

DRUGS (2)
  1. PRADAXA [Suspect]
     Active Substance: DABIGATRAN ETEXILATE MESYLATE
     Indication: PRODUCT USED FOR UNKNOWN INDICATION
     Route: 065
  2. ASPIRIN /CLOPIDOGREL [Concomitant]
     Indication: ANTIPLATELET THERAPY
     Route: 065

REACTIONS (5)
  - Neurological decompensation [Unknown]
  - Carotid artery aneurysm [Unknown]
  - Monoparesis [Unknown]
  - Aphasia [Unknown]
  - Carotid artery thrombosis [Unknown]
